FAERS Safety Report 14610774 (Version 2)
Quarter: 2020Q2

REPORT INFORMATION
  Report Type: Spontaneous
  Country: CH (occurrence: CH)
  Receive Date: 20180308
  Receipt Date: 20200529
  Transmission Date: 20200713
  Serious: Yes (Life-Threatening, Hospitalization, Other)
  Sender: FDA-Public Use
  Company Number: CH-BRISTOL-MYERS SQUIBB COMPANY-BMS-2018-020089

PATIENT
  Age: 33 Year
  Sex: Female
  Weight: 87 kg

DRUGS (5)
  1. EUTHYROX [Concomitant]
     Active Substance: LEVOTHYROXINE SODIUM
     Indication: AUTOIMMUNE THYROIDITIS
     Dosage: 50 MG, QD
     Route: 048
     Dates: start: 2005
  2. FEXOFENADINE [Concomitant]
     Active Substance: FEXOFENADINE HYDROCHLORIDE
     Indication: MASTOCYTOSIS
     Dosage: 180 MG, BID
     Route: 048
  3. TOPIRAMAT [Concomitant]
     Active Substance: TOPIRAMATE
     Indication: PRODUCT USED FOR UNKNOWN INDICATION
     Dosage: 25 MG, QD
     Route: 041
  4. RANIMED [Concomitant]
     Active Substance: RANITIDINE HYDROCHLORIDE
     Indication: MASTOCYTOSIS
     Dosage: 1 DF, BID
     Route: 048
  5. SPRYCEL [Suspect]
     Active Substance: DASATINIB
     Indication: MASTOCYTOSIS
     Dosage: 100 MILLIGRAM
     Route: 048
     Dates: start: 20180212, end: 20180212

REACTIONS (2)
  - Intentional product use issue [Recovered/Resolved]
  - Anaphylactic shock [Recovered/Resolved]

NARRATIVE: CASE EVENT DATE: 20180212
